FAERS Safety Report 8058114-3 (Version None)
Quarter: 2012Q1

REPORT INFORMATION
  Report Type: 
  Country: None (occurrence: None)
  Receive Date: 20120120
  Receipt Date: 20120110
  Transmission Date: 20120608
  Serious: Yes (Hospitalization)
  Sender: FDA-Public Use
  Company Number: US-BAYER-2010-001235

PATIENT
  Age: 17 Year
  Sex: Female
  Weight: 91.156 kg

DRUGS (4)
  1. YASMIN [Suspect]
     Indication: PREMENSTRUAL SYNDROME
     Dosage: UNK
     Dates: start: 20051101, end: 20110101
  2. DROSPIRENONE AND ETHINYL ESTRADIOL [Suspect]
     Indication: PREMENSTRUAL SYNDROME
     Dosage: UNK
     Dates: start: 20051101, end: 20110101
  3. DROSPIRENONE AND ETHINYL ESTRADIOL [Suspect]
  4. YASMIN [Suspect]

REACTIONS (2)
  - GALLBLADDER INJURY [None]
  - CHOLELITHIASIS [None]
